FAERS Safety Report 5345693-X (Version None)
Quarter: 2007Q2

REPORT INFORMATION
  Report Type: 
  Country: None (occurrence: None)
  Receive Date: 20070425
  Receipt Date: 20061031
  Transmission Date: 20071010
  Serious: Yes (Life-Threatening, Other)
  Sender: FDA-Public Use
  Company Number: 2006-149854-NL

PATIENT
  Sex: Female

DRUGS (1)
  1. ZEMURON [Suspect]
     Indication: INTUBATION
     Dosage: DF INTRAVENOUS (NOS)
     Route: 042
     Dates: end: 20061031

REACTIONS (1)
  - ANAPHYLACTIC REACTION [None]
